FAERS Safety Report 5196183-9 (Version None)
Quarter: 2006Q4

REPORT INFORMATION
  Report Type: 
  Country: None (occurrence: None)
  Receive Date: 20061221
  Receipt Date: 20061215
  Transmission Date: 20070319
  Serious: Yes (Death, Life-Threatening)
  Sender: FDA-Public Use
  Company Number: 2006-151957-NL

PATIENT
  Age: 73 Year
  Sex: Male

DRUGS (5)
  1. MIRTAZAPINE [Suspect]
     Dosage: 15 MG TID
     Route: 048
  2. CYAMEMAZINE [Suspect]
     Dosage: 25 MG QD
     Route: 048
  3. LITHIUM CARBONATE [Suspect]
     Dosage: 2.5 DF
     Route: 048
  4. VENLAFAXINE HYDROCHLORIDE [Suspect]
     Dosage: 100 MG
     Route: 048
  5. TRIMEBUTINE MALEATE [Suspect]
     Indication: ABDOMINAL DISCOMFORT
     Dates: start: 20060117

REACTIONS (1)
  - VOMITING [None]
